FAERS Safety Report 9149612 (Version 5)
Quarter: 2013Q2

REPORT INFORMATION
  Report Type: Report from Study
  Country: US (occurrence: US)
  Receive Date: 20130308
  Receipt Date: 20130628
  Transmission Date: 20140414
  Serious: Yes (Other)
  Sender: FDA-Public Use
  Company Number: US-VERTEX PHARMACEUTICALS INC.-2013-003156

PATIENT
  Age: 46 Year
  Sex: Female

DRUGS (15)
  1. VX-950 (TELAPREVIR) [Suspect]
     Indication: HEPATITIS C
     Dosage: UNK
     Route: 048
     Dates: start: 20121122, end: 20130220
  2. PEGASYS [Suspect]
     Indication: HEPATITIS C
     Dosage: 180 ?G, UNK
     Dates: start: 20121122
  3. PEGASYS [Suspect]
     Dosage: 90 ?G, QW
  4. RIBAVIRIN [Suspect]
     Indication: HEPATITIS C
     Dosage: 1000 MG, QD
     Dates: start: 20121122
  5. RIBAVIRIN [Suspect]
     Dosage: 800 MG, QD
  6. HYDROCODONE/ACETAMINOPHEN [Concomitant]
     Dosage: 5/325 MG, PRN
  7. ALDACTONE [Concomitant]
     Dosage: 200 MG, QD
  8. INDERAL [Concomitant]
     Dosage: 60 MG, QD
  9. VITAMIN D2 [Concomitant]
  10. VITAMIN E [Concomitant]
  11. OMEGA 3 [Concomitant]
  12. NORCO [Concomitant]
     Dosage: 5/325, PRN
  13. AMBIEN [Concomitant]
     Dosage: 5 MG, QD
  14. CLARITIN [Concomitant]
  15. BENADRYL [Concomitant]
     Dosage: UNK, PRN

REACTIONS (2)
  - Platelet count decreased [Not Recovered/Not Resolved]
  - Alopecia [Not Recovered/Not Resolved]
